FAERS Safety Report 4664609-2 (Version None)
Quarter: 2005Q2

REPORT INFORMATION
  Report Type: 
  Country: None (occurrence: None)
  Receive Date: 20050518
  Receipt Date: 20050512
  Transmission Date: 20051028
  Serious: Yes (Life-Threatening)
  Sender: FDA-Public Use
  Company Number: ES-GLAXOSMITHKLINE-B0381370A

PATIENT
  Age: 88 Year
  Sex: Female

DRUGS (11)
  1. PAROXETINE HCL [Suspect]
     Indication: DRUG USE FOR UNKNOWN INDICATION
     Route: 048
     Dates: start: 20021031
  2. RISPERIDONE [Suspect]
     Indication: DEPRESSION
     Dosage: 2MG TWICE PER DAY
     Route: 048
     Dates: start: 20050215, end: 20050224
  3. DISTRANEURINE [Concomitant]
     Route: 048
     Dates: start: 20050126, end: 20050224
  4. FENITOIN [Concomitant]
     Route: 048
     Dates: start: 20020213
  5. CLOPIDOGREL BISULFATE [Concomitant]
     Route: 048
     Dates: start: 20050215
  6. GLIBENCLAMIDE [Concomitant]
     Route: 048
     Dates: start: 20031127
  7. CLOBAZAM [Concomitant]
     Route: 048
     Dates: start: 20030115
  8. PENTOXIFYLLINE [Concomitant]
     Route: 048
     Dates: start: 20031119
  9. LETROZOLE [Concomitant]
     Route: 048
     Dates: start: 20030515
  10. ENALAPRIL MALEATE [Concomitant]
     Route: 048
     Dates: start: 20050215
  11. FUROSEMIDE [Concomitant]
     Route: 048
     Dates: start: 20020605

REACTIONS (2)
  - CEREBRAL ISCHAEMIA [None]
  - COMA [None]
